FAERS Safety Report 8059112-6 (Version None)
Quarter: 2012Q1

REPORT INFORMATION
  Report Type: 
  Country: None (occurrence: None)
  Receive Date: 20120120
  Receipt Date: 20120110
  Transmission Date: 20120608
  Serious: Yes (Hospitalization)
  Sender: FDA-Public Use
  Company Number: US-BAYER-200938522NA

PATIENT
  Age: 29 Year
  Sex: Female
  Weight: 84 kg

DRUGS (12)
  1. DROSPIRENONE AND ETHINYL ESTRADIOL [Suspect]
     Indication: CONTRACEPTION
     Dosage: UNK
     Dates: start: 20051101, end: 20091001
  2. VYTORIN [Concomitant]
     Dosage: UNK
     Route: 048
     Dates: start: 20060101
  3. YASMIN [Suspect]
     Indication: CONTRACEPTION
     Dosage: UNK UNK, QD
     Route: 048
     Dates: start: 20051101, end: 20091001
  4. FASTIN [Concomitant]
     Dosage: UNK
     Dates: start: 20070522, end: 20070827
  5. METFORMIN HCL [Concomitant]
     Indication: BLOOD GLUCOSE ABNORMAL
     Dosage: 500 MG, UNK
     Route: 048
     Dates: start: 20070901
  6. GLUCOPHAGE [Concomitant]
     Dosage: UNK
     Dates: start: 20070901
  7. CIPROFLOXACIN [Concomitant]
     Dosage: 500 MG, BID
     Dates: start: 20070827
  8. XANAX [Concomitant]
     Indication: ANXIETY
     Dosage: 0.5 MG, BID
     Route: 048
     Dates: start: 20051101
  9. BENEFIBER [Concomitant]
     Dosage: UNK
     Dates: start: 20070827
  10. VITAMIN E [Concomitant]
     Dosage: UNK UNK, QD
  11. NEXIUM [Concomitant]
     Indication: GASTROOESOPHAGEAL REFLUX DISEASE
     Dosage: UNK
     Dates: start: 20071001
  12. ZOLOFT [Concomitant]
     Dosage: 100 UNK, UNK

REACTIONS (2)
  - CHOLECYSTITIS CHRONIC [None]
  - PAIN [None]
